FAERS Safety Report 15041993 (Version 1)
Quarter: 2018Q2

REPORT INFORMATION
  Report Type: Report from Study
  Country: US (occurrence: US)
  Receive Date: 20180621
  Receipt Date: 20180621
  Transmission Date: 20180711
  Serious: No
  Sender: FDA-Public Use
  Company Number: US-ROCHE-2140289

PATIENT
  Age: 58 Year
  Sex: Female

DRUGS (3)
  1. OCREVUS [Suspect]
     Active Substance: OCRELIZUMAB
     Indication: MULTIPLE SCLEROSIS
     Dosage: 2ND INFUSION ;ONGOING: YES
     Route: 065
     Dates: start: 201705
  2. AMBIEN [Concomitant]
     Active Substance: ZOLPIDEM TARTRATE
  3. OCREVUS [Suspect]
     Active Substance: OCRELIZUMAB
     Dosage: 3RF INFUSION
     Route: 065
     Dates: start: 201805

REACTIONS (8)
  - Chills [Recovered/Resolved]
  - Muscular weakness [Recovered/Resolved]
  - Urinary tract infection [Unknown]
  - Movement disorder [Recovered/Resolved]
  - Incontinence [Recovered/Resolved]
  - Feeling cold [Unknown]
  - Fall [Unknown]
  - Ill-defined disorder [Recovered/Resolved]

NARRATIVE: CASE EVENT DATE: 201705
